FAERS Safety Report 5062425-3 (Version None)
Quarter: 2006Q3

REPORT INFORMATION
  Report Type: 
  Country: None (occurrence: None)
  Receive Date: 20060721
  Receipt Date: 20060707
  Transmission Date: 20061208
  Serious: Yes (Life-Threatening)
  Sender: FDA-Public Use
  Company Number: 2006-142904-NL

PATIENT
  Age: 73 Year
  Sex: Male

DRUGS (20)
  1. DANAPAROID SODIUM [Suspect]
     Indication: DISSEMINATED INTRAVASCULAR COAGULATION
     Dosage: INTRAVENOUS DRIP
     Route: 041
     Dates: start: 20060307, end: 20060316
  2. CYTARABINE [Concomitant]
  3. GEMTUZUMAB OZOGAMICIN [Concomitant]
  4. ANTITHROMBIN III [Concomitant]
  5. CEFOZOPRAN HYDROCHLORIDE [Concomitant]
  6. MICAFUNGIN SODIUM [Concomitant]
  7. TRANEXAMIC ACID [Concomitant]
  8. BIAPENEM [Concomitant]
  9. CLINDAMYCIN PHOSPHATE [Concomitant]
  10. VORICONAZOLE [Concomitant]
  11. VANCOMYCIN HYDROCHLORIDE [Concomitant]
  12. PLATELETS [Concomitant]
  13. HUMAN RED BLOOD CELLS [Concomitant]
  14. NEUPOGEN [Concomitant]
  15. GLIMEPIRIDE [Concomitant]
  16. METFORMIN HYDROCHLORIDE [Concomitant]
  17. VALSARTAN [Concomitant]
  18. FLUCONAZOLE [Concomitant]
  19. CIPROFLOXACIN HYDROCHLORIDE [Concomitant]
  20. ALLOPURINOL [Concomitant]

REACTIONS (15)
  - ACTIVATED PARTIAL THROMBOPLASTIN TIME PROLONGED [None]
  - ANAEMIA [None]
  - BLOOD FIBRINOGEN INCREASED [None]
  - BLOOD LACTATE DEHYDROGENASE INCREASED [None]
  - BLOOD POTASSIUM DECREASED [None]
  - DISEASE PROGRESSION [None]
  - FIBRIN DEGRADATION PRODUCTS INCREASED [None]
  - GAMMA-GLUTAMYLTRANSFERASE INCREASED [None]
  - HAEMORRHAGIC DIATHESIS [None]
  - LEUKOPENIA [None]
  - MALNUTRITION [None]
  - PLATELET COUNT DECREASED [None]
  - PNEUMONIA [None]
  - PROTEIN TOTAL DECREASED [None]
  - PROTHROMBIN TIME PROLONGED [None]
